FAERS Safety Report 23378566 (Version 1)
Quarter: 2024Q1

REPORT INFORMATION
  Report Type: Spontaneous
  Country: US (occurrence: None)
  Receive Date: 20240106
  Receipt Date: 20240106
  Transmission Date: 20240409
  Serious: No
  Sender: FDA-Public Use
  Company Number: None

PATIENT
  Age: 79 Year
  Sex: Female
  Weight: 81.9 kg

DRUGS (1)
  1. IPRATROPIUM [Suspect]
     Active Substance: IPRATROPIUM
     Indication: Rhinorrhoea
     Dosage: FREQUENCY : TWICE A DAY;?OTHER ROUTE : SPRAY 2 SPRAYS IN EACH NOSTRIL 2X DAILY;?
     Route: 050
     Dates: start: 20240102, end: 20240103

REACTIONS (4)
  - Hallucination [None]
  - Dizziness [None]
  - Contraindicated product prescribed [None]
  - Therapy cessation [None]

NARRATIVE: CASE EVENT DATE: 20240103
